FAERS Safety Report 5305149-7 (Version None)
Quarter: 2007Q2

REPORT INFORMATION
  Report Type: 
  Country: None (occurrence: None)
  Receive Date: 20070416
  Receipt Date: 20070405
  Transmission Date: 20071010
  Serious: Yes (Death)
  Sender: FDA-Public Use
  Company Number: MEDI-0005732

PATIENT
  Sex: Female

DRUGS (1)
  1. SYNAGIS [Suspect]
     Dates: start: 20070329, end: 20070329

REACTIONS (1)
  - SUDDEN INFANT DEATH SYNDROME [None]
